FAERS Safety Report 6208248-0 (Version None)
Quarter: 2009Q2

REPORT INFORMATION
  Report Type: 
  Country: None (occurrence: None)
  Receive Date: 20090522
  Receipt Date: 20090508
  Transmission Date: 20091009
  Serious: Yes (Hospitalization)
  Sender: FDA-Public Use
  Company Number: 2009AL002901

PATIENT
  Age: 51 Year
  Sex: Male

DRUGS (4)
  1. RIFAMPIN [Suspect]
     Indication: LYMPH NODE TUBERCULOSIS
     Dosage: 450 MG;QD;PO
     Route: 048
     Dates: start: 20021125
  2. HYDROCORTISONE [Concomitant]
  3. ISONIAZID [Concomitant]
  4. ETHAMBUTAOL [Concomitant]

REACTIONS (10)
  - ABNORMAL LABOUR [None]
  - ADDISON'S DISEASE [None]
  - DRUG ERUPTION [None]
  - ERYTHEMA [None]
  - KERATITIS [None]
  - LICHEN PLANUS [None]
  - PRURITUS [None]
  - SKIN EXFOLIATION [None]
  - SKIN HYPERTROPHY [None]
  - WEIGHT DECREASED [None]
